FAERS Safety Report 8979799 (Version 1)
Quarter: 2012Q4

REPORT INFORMATION
  Report Type: 
  Country: FR (occurrence: FR)
  Receive Date: 20121221
  Receipt Date: 20121221
  Transmission Date: 20130627
  Serious: Yes (Hospitalization, Disabling)
  Sender: FDA-Public Use
  Company Number: FR-SANOFI-AVENTIS-2012SA091091

PATIENT
  Age: 34 Year
  Sex: Female
  Weight: 48 kg

DRUGS (20)
  1. RIFATER [Suspect]
     Indication: HIV INFECTION
     Route: 065
     Dates: start: 20081114
  2. ENFUVIRTIDE [Suspect]
     Indication: HIV INFECTION
     Route: 058
     Dates: start: 20081114
  3. SUSTIVA [Suspect]
     Indication: HIV INFECTION
     Route: 065
     Dates: start: 20081114
  4. EMTRICITABINE/TENOFOVIR DISOPROXIL FUMARATE [Suspect]
     Indication: HIV INFECTION
     Route: 048
     Dates: start: 20081114
  5. MYAMBUTOL [Suspect]
     Indication: HIV INFECTION
     Route: 065
     Dates: start: 20081114
  6. BACTRIM [Concomitant]
     Dates: start: 20081106
  7. SPECIAFOLDINE [Concomitant]
     Dates: start: 20081106
  8. SOLU-MEDROL [Concomitant]
     Dates: start: 20081201
  9. PREDNISOLONE [Concomitant]
     Dates: start: 20081201
  10. RIFADINE [Concomitant]
     Dates: start: 20081114
  11. RIFADINE [Concomitant]
     Dates: start: 20090328
  12. INEXIUM [Concomitant]
  13. NEURONTIN [Concomitant]
     Dates: start: 20081119
  14. PIRILENE [Concomitant]
     Dates: start: 20090206
  15. RIMIFON [Concomitant]
     Dates: start: 20090328, end: 20091221
  16. LAROXYL [Concomitant]
  17. DUROGESIC [Concomitant]
  18. ERYTHROMYCIN [Concomitant]
  19. OCTREOTIDE [Concomitant]
  20. RIBAVIRIN [Concomitant]
     Dates: end: 20091221

REACTIONS (2)
  - General physical condition abnormal [Recovered/Resolved]
  - Pyrexia [Recovered/Resolved]
